FAERS Safety Report 21532539 (Version 1)
Quarter: 2022Q4

REPORT INFORMATION
  Report Type: Spontaneous
  Country: US (occurrence: US)
  Receive Date: 20221101
  Receipt Date: 20221101
  Transmission Date: 20230113
  Serious: No
  Sender: FDA-Public Use
  Company Number: US-ORGANON-O2210USA001064

PATIENT
  Sex: Female
  Weight: 112.02 kg

DRUGS (1)
  1. NEXPLANON [Suspect]
     Active Substance: ETONOGESTREL
     Indication: Contraception
     Dosage: 1 IMPLANT EVERY 3 YEARS IN LEFT ARM
     Route: 059
     Dates: start: 20200319, end: 20221011

REACTIONS (7)
  - Heavy menstrual bleeding [Unknown]
  - Mood swings [Unknown]
  - Irritability [Unknown]
  - Implant site pain [Unknown]
  - Acne [Unknown]
  - Hormone level abnormal [Unknown]
  - Device breakage [Recovered/Resolved]
